FAERS Safety Report 5566194-X (Version None)
Quarter: 2007Q4

REPORT INFORMATION
  Report Type: 
  Country: None (occurrence: None)
  Receive Date: 20071219
  Receipt Date: 20071012
  Transmission Date: 20080405
  Serious: No
  Sender: FDA-Public Use
  Company Number: US-KINGPHARMUSA00001-K200701329

PATIENT

DRUGS (1)
  1. APLISOL [Suspect]
     Indication: TUBERCULIN TEST
     Dosage: UNK, SINGLE
     Dates: start: 20071001, end: 20071001

REACTIONS (1)
  - FALSE POSITIVE TUBERCULOSIS TEST [None]
